FAERS Safety Report 9788323 (Version 3)
Quarter: 2014Q1

REPORT INFORMATION
  Report Type: Report from Study
  Country: FR (occurrence: FR)
  Receive Date: 20131230
  Receipt Date: 20140225
  Transmission Date: 20141002
  Serious: Yes (Congenital Anomaly)
  Sender: FDA-Public Use
  Company Number: FR-B.I. PHARMACEUTICALS,INC./RIDGEFIELD-2013-BI-43753BI

PATIENT
  Sex: 0

DRUGS (2)
  1. VIRAMUNE [Suspect]
     Indication: EXPOSURE DURING PREGNANCY
     Route: 064
  2. COMBIVIR [Concomitant]
     Indication: EXPOSURE DURING PREGNANCY
     Dosage: 2 TAB/CAPS
     Route: 064

REACTIONS (1)
  - Foetal malformation [Unknown]
